FAERS Safety Report 5202722-1 (Version None)
Quarter: 2006Q4

REPORT INFORMATION
  Report Type: 
  Country: None (occurrence: None)
  Receive Date: 20061018
  Receipt Date: 20041118
  Transmission Date: 20070319
  Serious: Yes (Hospitalization)
  Sender: FDA-Public Use
  Company Number: PHEH2004US12569

PATIENT
  Age: 42 Year
  Sex: Female

DRUGS (8)
  1. ZOMETA [Suspect]
     Indication: METASTASES TO BONE
     Dates: start: 20010101, end: 20041101
  2. PANTOPRAZOLE SODIUM [Concomitant]
  3. MORPHINE SULFATE [Concomitant]
  4. OXYCONTIN [Concomitant]
  5. ATIVAN [Concomitant]
  6. DURAGESIC-100 [Concomitant]
  7. CELEBREX [Concomitant]
  8. CHEMOTHERAPEUTICS, OTHER (CHEMOTHERAPEUTICS, OTHER) [Concomitant]

REACTIONS (2)
  - POST PROCEDURAL COMPLICATION [None]
  - TOOTH EXTRACTION [None]
